FAERS Safety Report 17164076 (Version 1)
Quarter: 2019Q4

REPORT INFORMATION
  Report Type: Report from Study
  Country: JP (occurrence: JP)
  Receive Date: 20191217
  Receipt Date: 20191217
  Transmission Date: 20200122
  Serious: Yes (Hospitalization)
  Sender: FDA-Public Use
  Company Number: JP-ACTELION-A-CH2019-199308

PATIENT
  Age: 1 Year
  Sex: Female
  Weight: 4.9 kg

DRUGS (12)
  1. OPSUMIT [Suspect]
     Active Substance: MACITENTAN
     Dosage: 1.4 MG, QD
     Route: 048
  2. OPSUMIT [Suspect]
     Active Substance: MACITENTAN
     Dosage: 0.9 MG, BID
     Route: 048
     Dates: start: 201909
  3. ADCIRCA [Concomitant]
     Active Substance: TADALAFIL
  4. OPSUMIT [Suspect]
     Active Substance: MACITENTAN
     Dosage: 1.0 MG, BID
     Route: 048
     Dates: start: 201911
  5. UPTRAVI [Concomitant]
     Active Substance: SELEXIPAG
  6. OPSUMIT [Suspect]
     Active Substance: MACITENTAN
     Indication: PULMONARY ARTERIAL HYPERTENSION
     Dosage: 1.0 MG, QD
     Route: 048
     Dates: start: 20171121
  7. LASIX [Concomitant]
     Active Substance: FUROSEMIDE
  8. OXYGEN. [Concomitant]
     Active Substance: OXYGEN
  9. BERAPROST [Concomitant]
     Active Substance: BERAPROST
  10. ALDACTONE A [Concomitant]
     Active Substance: SPIRONOLACTONE
  11. OPSUMIT [Suspect]
     Active Substance: MACITENTAN
     Dosage: 0.7 MG, BID
     Route: 048
  12. REVATIO [Concomitant]
     Active Substance: SILDENAFIL CITRATE

REACTIONS (2)
  - Bronchitis [Recovering/Resolving]
  - Upper respiratory tract inflammation [Recovering/Resolving]

NARRATIVE: CASE EVENT DATE: 20180525
